FAERS Safety Report 4312095-4 (Version None)
Quarter: 2004Q1

REPORT INFORMATION
  Report Type: 
  Country: None (occurrence: None)
  Receive Date: 20040303
  Receipt Date: 20040213
  Transmission Date: 20041129
  Serious: Yes (Hospitalization)
  Sender: FDA-Public Use
  Company Number: 04P-083-0251604-00

PATIENT
  Age: 62 Year
  Sex: Female

DRUGS (2)
  1. ISOPTIN [Suspect]
     Indication: HYPERTENSION
     Dosage: 240 MG, 1 IN  1 D, ORAL
     Route: 048
     Dates: start: 19971108, end: 19971108
  2. ISOPHANE INSULIN [Concomitant]

REACTIONS (9)
  - ATRIOVENTRICULAR BLOCK [None]
  - BRADYCARDIA [None]
  - CIRCULATORY COLLAPSE [None]
  - CONDUCTION DISORDER [None]
  - HYPOTENSION [None]
  - NODAL RHYTHM [None]
  - RENAL IMPAIRMENT [None]
  - SHOCK [None]
  - SINOATRIAL BLOCK [None]
